FAERS Safety Report 4921192-1 (Version None)
Quarter: 2006Q1

REPORT INFORMATION
  Report Type: 
  Country: None (occurrence: None)
  Receive Date: 20060217
  Receipt Date: 20060208
  Transmission Date: 20060701
  Serious: Yes (Hospitalization)
  Sender: FDA-Public Use
  Company Number: 2006008886

PATIENT
  Age: 67 Year
  Sex: Male

DRUGS (4)
  1. LIPITOR [Suspect]
     Indication: HYPERLIPIDAEMIA
     Dosage: 20  MG (20  MG, 1 IN 1 D), ORAL
     Route: 048
     Dates: start: 20050301
  2. ASPIRIN [Concomitant]
  3. PREDNISONE TAB [Concomitant]
  4. PROMETHAZINE HYDROCHLORIDE TAB [Concomitant]

REACTIONS (2)
  - ANAPHYLACTIC REACTION [None]
  - ANGIONEUROTIC OEDEMA [None]
